FAERS Safety Report 12446255 (Version 1)
Quarter: 2016Q2

REPORT INFORMATION
  Report Type: Spontaneous
  Country: FR (occurrence: FR)
  Receive Date: 20160608
  Receipt Date: 20160608
  Transmission Date: 20160815
  Serious: Yes (Other)
  Sender: FDA-Public Use
  Company Number: FR-ASTRAZENECA-2016SE60906

PATIENT
  Age: 595 Month
  Sex: Male

DRUGS (1)
  1. HYTACAND [Suspect]
     Active Substance: CANDESARTAN CILEXETIL\HYDROCHLOROTHIAZIDE
     Indication: HYPERTENSION
     Dosage: 16 MG + 12.5 MG
     Route: 048
     Dates: start: 2008

REACTIONS (1)
  - Myopia [Unknown]

NARRATIVE: CASE EVENT DATE: 201601
